FAERS Safety Report 4675550-3 (Version None)
Quarter: 2005Q2

REPORT INFORMATION
  Report Type: 
  Country: None (occurrence: None)
  Receive Date: 20050527
  Receipt Date: 20050408
  Transmission Date: 20051028
  Serious: No
  Sender: FDA-Public Use
  Company Number: US-BRISTOL-MYERS SQUIBB COMPANY-12927463

PATIENT
  Age: 58 Year
  Sex: Female
  Weight: 90 kg

DRUGS (3)
  1. ABILIFY [Suspect]
     Indication: PARANOIA
     Dates: start: 20050101
  2. ALLEGRA [Concomitant]
  3. LEVOTHROID [Concomitant]

REACTIONS (1)
  - THINKING ABNORMAL [None]
